FAERS Safety Report 15311557 (Version 4)
Quarter: 2018Q4

REPORT INFORMATION
  Report Type: Spontaneous
  Country: US (occurrence: US)
  Receive Date: 20180823
  Receipt Date: 20181102
  Transmission Date: 20190204
  Serious: Yes (Hospitalization, Other)
  Sender: FDA-Public Use
  Company Number: US-PFIZER INC-2018334469

PATIENT
  Age: 74 Year
  Sex: Female
  Weight: 84.82 kg

DRUGS (2)
  1. LYRICA [Suspect]
     Active Substance: PREGABALIN
     Indication: DIABETIC NEUROPATHY
     Dosage: 1 DF, 2X/DAY
     Dates: start: 20180421
  2. LYRICA [Suspect]
     Active Substance: PREGABALIN
     Indication: PARAESTHESIA
     Dosage: 100 MG, UNK
     Route: 048
     Dates: start: 20120501

REACTIONS (15)
  - Weight increased [Recovering/Resolving]
  - Cardiac disorder [Unknown]
  - Fluid retention [Recovering/Resolving]
  - Drug ineffective [Not Recovered/Not Resolved]
  - Dizziness [Unknown]
  - Balance disorder [Unknown]
  - Fall [Unknown]
  - Oedema [Unknown]
  - Swelling [Recovering/Resolving]
  - Gait inability [Unknown]
  - Insomnia [Not Recovered/Not Resolved]
  - Limb injury [Unknown]
  - Joint injury [Unknown]
  - Asthenia [Recovering/Resolving]
  - Tremor [Unknown]

NARRATIVE: CASE EVENT DATE: 2018
